FAERS Safety Report 5213963-1 (Version None)
Quarter: 2007Q1

REPORT INFORMATION
  Report Type: 
  Country: None (occurrence: None)
  Receive Date: 20070122
  Receipt Date: 20070110
  Transmission Date: 20070707
  Serious: Yes (Other)
  Sender: FDA-Public Use
  Company Number: PHFR2007GB00530

PATIENT
  Sex: Female

DRUGS (2)
  1. TEGRETOL [Suspect]
     Dosage: 200 MG, 5QD
     Route: 048
  2. TEGRETOL [Suspect]
     Route: 048

REACTIONS (2)
  - ASPIRATION [None]
  - DYSPHAGIA [None]
